FAERS Safety Report 21911211 (Version 1)
Quarter: 2023Q1

REPORT INFORMATION
  Report Type: Spontaneous
  Country: US (occurrence: None)
  Receive Date: 20230125
  Receipt Date: 20230125
  Transmission Date: 20230418
  Serious: Yes (Disabling)
  Sender: FDA-Public Use
  Company Number: None

PATIENT
  Age: 61 Year
  Sex: Female
  Weight: 60.3 kg

DRUGS (1)
  1. VYVANSE [Suspect]
     Active Substance: LISDEXAMFETAMINE DIMESYLATE
     Indication: Binge eating
     Dosage: OTHER QUANTITY : 1 CAPSULE(S);?
     Route: 048

REACTIONS (5)
  - Dry mouth [None]
  - Stomatitis [None]
  - Swollen tongue [None]
  - Oral disorder [None]
  - Muscle twitching [None]

NARRATIVE: CASE EVENT DATE: 20221206
